FAERS Safety Report 8606715-3 (Version None)
Quarter: 2012Q3

REPORT INFORMATION
  Report Type: 
  Country: None (occurrence: None)
  Receive Date: 20120820
  Receipt Date: 20120814
  Transmission Date: 20120928
  Serious: Yes (Life-Threatening, Other)
  Sender: FDA-Public Use
  Company Number: CA-ROCHE-1005962

PATIENT
  Sex: Female
  Weight: 96.702 kg

DRUGS (31)
  1. NASONEX [Concomitant]
  2. RATIO-LENOLTEC PRODUCT NOS [Concomitant]
     Dosage: 1-2 EVERY 4 HOUR AS NEEDED
  3. RISEDRONATE SODIUM [Concomitant]
  4. VENTOLIN [Concomitant]
  5. ESCITALOPRAM [Concomitant]
  6. GLICLAZIDE [Concomitant]
  7. ROACTEMRA [Suspect]
     Route: 042
     Dates: start: 20110727
  8. METFORMIN HCL [Concomitant]
  9. FENTANYL [Concomitant]
     Dosage: 100MCG/H2 PATCHES/72 HOURS
  10. ADVAIR [Concomitant]
     Dosage: 500/50MCG 1PUFF/2 DAY
  11. TYLENOL #3 (UNITED STATES) [Concomitant]
  12. DILTAHEXAL [Concomitant]
  13. ROACTEMRA [Suspect]
     Indication: RHEUMATOID ARTHRITIS
     Route: 042
     Dates: start: 20110628
  14. ROACTEMRA [Suspect]
     Dates: start: 20120501
  15. DOMPERIDONE [Concomitant]
  16. PANTOPRAZOLE SODIUM [Concomitant]
  17. BIMATOPROST [Concomitant]
     Dosage: 0.01% 1/EYE/DAY
  18. ALBUTEROL SULFATE AUTOHALER [Concomitant]
  19. DOCUSATE SODIUM [Concomitant]
  20. ROACTEMRA [Suspect]
     Dates: start: 20111116
  21. PRAMIPEXOLE DIHYCHLORIDE [Concomitant]
  22. ATROVENT [Concomitant]
     Dosage: 20MCG 2-4 PUFFS 4 PER DAY
  23. ESCITALOPRAM [Concomitant]
  24. CRESTOR [Concomitant]
  25. RAMIPRIL [Concomitant]
  26. WARFARIN SODIUM [Concomitant]
  27. DIPHENHYDRAMINE HYDROCHLORIDE/ZINC ACETATE [Concomitant]
     Dosage: 1/2 DOSE 15 MINUTES PRIOR TO INFUSION
  28. GRAVEL ROOT [Concomitant]
     Dosage: AS NEEDED
  29. SINGULAIR [Concomitant]
  30. GAVISCON (UNK INGREDIENTS) [Concomitant]
  31. MORPHINE SULFATE [Concomitant]
     Dosage: 1-2/DAY AS NEEDED

REACTIONS (5)
  - PNEUMOTHORAX [None]
  - WRIST FRACTURE [None]
  - OEDEMA PERIPHERAL [None]
  - HAND FRACTURE [None]
  - PAIN IN EXTREMITY [None]
